FAERS Safety Report 5218714-2 (Version None)
Quarter: 2007Q1

REPORT INFORMATION
  Report Type: 
  Country: None (occurrence: None)
  Receive Date: 20070122
  Receipt Date: 20070118
  Transmission Date: 20070707
  Serious: Yes (Other)
  Sender: FDA-Public Use
  Company Number: 227861

PATIENT
  Sex: Male

DRUGS (4)
  1. AVASTIN [Suspect]
     Indication: COLORECTAL CANCER
  2. OXALIPLATIN [Concomitant]
  3. MAGNESIUM SULFATE [Concomitant]
  4. CALCIUM GLUCONATE [Concomitant]

REACTIONS (4)
  - FLUSHING [None]
  - HEADACHE [None]
  - RASH [None]
  - TACHYCARDIA [None]
